FAERS Safety Report 18732634 (Version 3)
Quarter: 2021Q1

REPORT INFORMATION
  Report Type: Spontaneous
  Country: JP (occurrence: JP)
  Receive Date: 20210113
  Receipt Date: 20210331
  Transmission Date: 20210419
  Serious: Yes (Life-Threatening, Other)
  Sender: FDA-Public Use
  Company Number: JP-009507513-2101JPN000928J

PATIENT
  Age: 60 Year
  Sex: Male
  Weight: 61 kg

DRUGS (8)
  1. PANVITAN [Concomitant]
     Active Substance: VITAMINS
     Indication: CHEMOTHERAPY SIDE EFFECT PROPHYLAXIS
     Dosage: 1 GRAM, QD
     Route: 048
     Dates: start: 20200807, end: 20210104
  2. LANSOPRAZOLE. [Concomitant]
     Active Substance: LANSOPRAZOLE
     Indication: ABDOMINAL PAIN UPPER
     Dosage: 15 MILLIGRAM, QD
     Route: 048
     Dates: start: 20200702
  3. KEYTRUDA [Suspect]
     Active Substance: PEMBROLIZUMAB
     Indication: NON-SMALL CELL LUNG CANCER STAGE IV
     Dosage: 200 MILLIGRAM, Q3W
     Route: 041
     Dates: start: 20200818, end: 20201130
  4. BIOFERMIN (BACILLUS SUBTILIS (+) ENTEROCOCCUS FAECALIS (+) LACTOBACILL [Concomitant]
     Dosage: 2 DOSAGE FORM, TID
     Route: 048
     Dates: start: 20200822
  5. PEMETREXED DISODIUM [Suspect]
     Active Substance: PEMETREXED DISODIUM
     Indication: NON-SMALL CELL LUNG CANCER STAGE IV
     Dosage: 825 MILLIGRAM, Q3W
     Route: 041
     Dates: start: 20200818, end: 20201130
  6. MOSAPRIDE CITRATE [Concomitant]
     Active Substance: MOSAPRIDE CITRATE
     Dosage: 5 MILLIGRAM, TID
     Route: 048
     Dates: start: 20200702
  7. CARBOPLATIN. [Suspect]
     Active Substance: CARBOPLATIN
     Indication: NON-SMALL CELL LUNG CANCER STAGE IV
     Dosage: 480 MILLIGRAM, Q3W
     Route: 041
     Dates: start: 20200818, end: 20201019
  8. BELSOMRA [Concomitant]
     Active Substance: SUVOREXANT
     Indication: INSOMNIA
     Dosage: 15 MILLIGRAM, QD
     Route: 048
     Dates: start: 20200717

REACTIONS (1)
  - Pulmonary tuberculosis [Recovering/Resolving]

NARRATIVE: CASE EVENT DATE: 20201130
